FAERS Safety Report 4718209-6 (Version None)
Quarter: 2005Q3

REPORT INFORMATION
  Report Type: 
  Country: None (occurrence: None)
  Receive Date: 20050719
  Receipt Date: 20050609
  Transmission Date: 20060218
  Serious: Yes (Death)
  Sender: FDA-Public Use
  Company Number: A-US2002-01492

PATIENT
  Age: 53 Year
  Sex: Female
  Weight: 59.5 kg

DRUGS (6)
  1. TRACLEER [Suspect]
     Indication: PULMONARY HYPERTENSION
     Dosage: 125 MG BID;
     Dates: end: 20020913
  2. DILTIAZEM [Suspect]
     Dates: start: 20020701
  3. VIAGRA [Suspect]
  4. FLOLAN [Concomitant]
  5. COUMADIN [Concomitant]
  6. DIGOXIN [Concomitant]

REACTIONS (2)
  - BLOOD ALKALINE PHOSPHATASE INCREASED [None]
  - LIVER FUNCTION TEST ABNORMAL [None]
